FAERS Safety Report 8691043 (Version 2)
Quarter: 2012Q4

REPORT INFORMATION
  Report Type: 
  Country: BE (occurrence: BE)
  Receive Date: 20120730
  Receipt Date: 20120828
  Transmission Date: 20130627
  Serious: Yes (Death)
  Sender: FDA-Public Use
  Company Number: BE-JNJFOC-20120712209

PATIENT
  Sex: Female

DRUGS (4)
  1. PALIPERIDONE PALMITATE [Suspect]
     Indication: SCHIZOPHRENIA, PARANOID TYPE
     Route: 030
     Dates: start: 20120520
  2. PALIPERIDONE PALMITATE [Suspect]
     Indication: SCHIZOPHRENIA, PARANOID TYPE
     Dosage: dosage believed to be 50 mg. patient received paliperidone palmitate for 2 months
     Route: 030
     Dates: start: 20120330
  3. SEMAP [Suspect]
     Indication: SCHIZOPHRENIA, PARANOID TYPE
     Route: 065
  4. INVEGA [Suspect]
     Indication: SCHIZOPHRENIA, PARANOID TYPE
     Dosage: dosage believed to be 50 mg. patient received paliperidone palmitate for 2 months
     Route: 048

REACTIONS (4)
  - Completed suicide [Fatal]
  - Drug ineffective [Fatal]
  - Psychotic disorder [None]
  - Feeling of despair [None]
